FAERS Safety Report 12442488 (Version 2)
Quarter: 2016Q2

REPORT INFORMATION
  Report Type: Spontaneous
  Country: AU (occurrence: AU)
  Receive Date: 20160607
  Receipt Date: 20160615
  Transmission Date: 20160815
  Serious: Yes (Other)
  Sender: FDA-Public Use
  Company Number: AU-DRREDDYS-USA/AUS/16/0080378

PATIENT
  Age: 26 Year
  Sex: Female

DRUGS (6)
  1. SERTRALINE [Suspect]
     Active Substance: SERTRALINE HYDROCHLORIDE
     Route: 065
  2. LAMOTRIGINE. [Concomitant]
     Active Substance: LAMOTRIGINE
     Indication: BIPOLAR I DISORDER
     Route: 065
  3. ASENAPINE [Concomitant]
     Active Substance: ASENAPINE
     Indication: BIPOLAR I DISORDER
     Route: 065
  4. LITHIUM. [Concomitant]
     Active Substance: LITHIUM
     Indication: BIPOLAR I DISORDER
     Route: 065
  5. AGOMELATINE [Concomitant]
     Active Substance: AGOMELATINE
     Indication: BIPOLAR I DISORDER
     Dosage: NOCTE
     Route: 065
  6. SERTRALINE [Suspect]
     Active Substance: SERTRALINE HYDROCHLORIDE
     Indication: BIPOLAR I DISORDER
     Route: 065

REACTIONS (2)
  - Mania [Unknown]
  - Mood swings [Recovered/Resolved]
